FAERS Safety Report 16387098 (Version 1)
Quarter: 2019Q2

REPORT INFORMATION
  Report Type: Spontaneous
  Country: US (occurrence: US)
  Receive Date: 20190604
  Receipt Date: 20190604
  Transmission Date: 20190711
  Serious: No
  Sender: FDA-Public Use
  Company Number: US-UNITED THERAPEUTICS-UNT-2019-008945

PATIENT
  Sex: Female
  Weight: 83.9 kg

DRUGS (3)
  1. OPSUMIT [Concomitant]
     Active Substance: MACITENTAN
     Indication: PRODUCT USED FOR UNKNOWN INDICATION
     Dosage: UNK
     Route: 065
  2. TYVASO [Suspect]
     Active Substance: TREPROSTINIL
     Indication: PULMONARY ARTERIAL HYPERTENSION
     Dosage: 18-54 ?G, QID
     Dates: start: 20190116
  3. TYVASO [Suspect]
     Active Substance: TREPROSTINIL
     Dosage: 60-120 ?G, QID

REACTIONS (6)
  - Musculoskeletal pain [Unknown]
  - Myalgia [Unknown]
  - Pain in jaw [Recovered/Resolved]
  - Musculoskeletal stiffness [Unknown]
  - Headache [Unknown]
  - Off label use [Unknown]
